FAERS Safety Report 22536035 (Version 1)
Quarter: 2023Q2

REPORT INFORMATION
  Report Type: Spontaneous
  Country: FR (occurrence: FR)
  Receive Date: 20230608
  Receipt Date: 20230608
  Transmission Date: 20230721
  Serious: Yes (Life-Threatening)
  Sender: FDA-Public Use
  Company Number: None

PATIENT
  Age: 46 Year
  Sex: Male
  Weight: 88 kg

DRUGS (4)
  1. PROPOFOL [Suspect]
     Active Substance: PROPOFOL
     Indication: General anaesthesia
     Dosage: ROUTE OF ADMIN.- INTRAVENOUS (NOT OTHERWISE SPECIFIED) ( INT )
     Route: 042
     Dates: start: 20230407, end: 20230407
  2. ROCURONIUM BROMIDE [Suspect]
     Active Substance: ROCURONIUM BROMIDE
     Indication: General anaesthesia
     Dosage: ROUTE OF ADMIN.- INTRAVENOUS (NOT OTHERWISE SPECIFIED) ( INT )
     Route: 042
     Dates: start: 20230407, end: 20230407
  3. SUFENTANIL CITRATE [Suspect]
     Active Substance: SUFENTANIL CITRATE
     Indication: General anaesthesia
     Dosage: ROUTE OF ADMIN.- INTRAVENOUS (NOT OTHERWISE SPECIFIED) ( INT )
     Route: 042
     Dates: start: 20230407, end: 20230407
  4. KETAMINE [Suspect]
     Active Substance: KETAMINE
     Indication: Induction of anaesthesia
     Dosage: ROUTE OF ADMIN.- INTRAVENOUS (NOT OTHERWISE SPECIFIED) ( INT )
     Route: 042
     Dates: start: 20230407, end: 20230407

REACTIONS (1)
  - Anaphylactic shock [Recovered/Resolved]

NARRATIVE: CASE EVENT DATE: 20230407
